FAERS Safety Report 9367401 (Version 1)
Quarter: 2013Q2

REPORT INFORMATION
  Report Type: Spontaneous
  Country: US (occurrence: US)
  Receive Date: 20130625
  Receipt Date: 20130625
  Transmission Date: 20140414
  Serious: No
  Sender: FDA-Public Use
  Company Number: US-TEVA-415300USA

PATIENT
  Age: 21 Year
  Sex: Female
  Weight: 55.39 kg

DRUGS (2)
  1. PLAN B ONE-STEP [Suspect]
     Indication: POST COITAL CONTRACEPTION
     Dosage: 1.5 MILLIGRAM DAILY;
     Route: 048
     Dates: start: 20130613, end: 20130613
  2. UNSPECIFIED EMERGENCY CONTRACEPTIVE [Suspect]
     Indication: POST COITAL CONTRACEPTION

REACTIONS (3)
  - Anxiety [Not Recovered/Not Resolved]
  - Dizziness [Recovered/Resolved]
  - Fatigue [Recovered/Resolved]
